FAERS Safety Report 9424598 (Version 2)
Quarter: 2013Q3

REPORT INFORMATION
  Report Type: Spontaneous
  Country: US (occurrence: US)
  Receive Date: 20130729
  Receipt Date: 20130827
  Transmission Date: 20140515
  Serious: No
  Sender: FDA-Public Use
  Company Number: US-BAYER-2013-090425

PATIENT
  Age: 64 Year
  Sex: Female
  Weight: 66.21 kg

DRUGS (2)
  1. BAYER ASPIRIN REGIMEN ADULT LOW STRENGTH [Suspect]
     Indication: HEART RATE INCREASED
     Dosage: 1 DF, QD
     Route: 048
     Dates: start: 2010
  2. ALEVE CAPLET [Suspect]
     Indication: ARTHRITIS
     Route: 048

REACTIONS (2)
  - Drug ineffective [None]
  - Off label use [None]
